FAERS Safety Report 10027593 (Version 3)
Quarter: 2014Q2

REPORT INFORMATION
  Report Type: Spontaneous
  Country: FR (occurrence: FR)
  Receive Date: 20140321
  Receipt Date: 20140404
  Transmission Date: 20141212
  Serious: Yes (Hospitalization)
  Sender: FDA-Public Use
  Company Number: FR-PFIZER INC-2014078588

PATIENT
  Age: 33 Year
  Sex: Female

DRUGS (5)
  1. ADVIL [Suspect]
     Indication: GENERAL PHYSICAL HEALTH DETERIORATION
     Dosage: 400 MG
     Route: 048
     Dates: start: 20131222, end: 20131223
  2. ADVIL [Suspect]
     Indication: LOCAL SWELLING
  3. SURGAM [Suspect]
     Indication: GENERAL PHYSICAL HEALTH DETERIORATION
     Dosage: 200 MG
     Route: 048
     Dates: start: 20131222, end: 20131223
  4. SURGAM [Suspect]
     Indication: LOCAL SWELLING
  5. PROZAC [Concomitant]
     Indication: DEPRESSION
     Dosage: UNK

REACTIONS (2)
  - Cellulitis [Recovered/Resolved]
  - Circulatory collapse [Recovered/Resolved]
